FAERS Safety Report 9462800 (Version 2)
Quarter: 2013Q3

REPORT INFORMATION
  Report Type: Spontaneous
  Country: IT (occurrence: None)
  Receive Date: 20130814
  Receipt Date: 20130820
  Transmission Date: 20140515
  Serious: Yes (Hospitalization)
  Sender: FDA-Public Use
  Company Number: AUR-APL-2013-06725

PATIENT
  Sex: Male

DRUGS (4)
  1. RAMIPRIL [Suspect]
     Indication: HYPERTENSION
     Route: 048
     Dates: start: 20130601
  2. LASIX (FUROSEMIDE) [Suspect]
     Indication: HYPERTENSION
  3. SOTALEX [Suspect]
     Indication: HYPERTENSION
     Route: 048
     Dates: start: 20130101
  4. METFORMIN [Concomitant]

REACTIONS (1)
  - Sinus bradycardia [None]
